FAERS Safety Report 7168183-0 (Version None)
Quarter: 2010Q4

REPORT INFORMATION
  Report Type: 
  Country: None (occurrence: None)
  Receive Date: 20101216
  Receipt Date: 20101214
  Transmission Date: 20110411
  Serious: Yes (Other)
  Sender: FDA-Public Use
  Company Number: BR-PFIZER INC-2010119663

PATIENT
  Age: 50 Year
  Sex: Male
  Weight: 57 kg

DRUGS (5)
  1. CHANTIX [Suspect]
     Indication: TOBACCO USER
     Dosage: 1 MG, 2X/DAY
     Route: 048
     Dates: start: 20100910
  2. CHANTIX [Interacting]
     Dosage: 1 MG, 2X/DAY
     Route: 048
  3. ALCOHOL [Interacting]
  4. FORASEQ [Concomitant]
     Dosage: UNK
  5. VIAGRA [Concomitant]
     Indication: CHRONIC OBSTRUCTIVE PULMONARY DISEASE
     Dosage: UNK

REACTIONS (6)
  - AGGRESSION [None]
  - ANXIETY [None]
  - DRUG INTERACTION [None]
  - MEMORY IMPAIRMENT [None]
  - NERVOUSNESS [None]
  - RESTLESSNESS [None]
